FAERS Safety Report 16657997 (Version 2)
Quarter: 2019Q3

REPORT INFORMATION
  Report Type: Spontaneous
  Country: BE (occurrence: BE)
  Receive Date: 20190801
  Receipt Date: 20190827
  Transmission Date: 20191004
  Serious: Yes (Other)
  Sender: FDA-Public Use
  Company Number: BE-ASTRAZENECA-2019SF06883

PATIENT
  Sex: Female
  Weight: 87 kg

DRUGS (2)
  1. ONGLYZA [Suspect]
     Active Substance: SAXAGLIPTIN HYDROCHLORIDE
     Indication: TYPE 2 DIABETES MELLITUS
     Route: 048
     Dates: start: 20190515, end: 20190630
  2. FORXIGA [Suspect]
     Active Substance: DAPAGLIFLOZIN
     Indication: TYPE 2 DIABETES MELLITUS
     Route: 048
     Dates: start: 20181010, end: 20190515

REACTIONS (5)
  - Vaginal oedema [Recovered/Resolved]
  - Vulvovaginal burning sensation [Recovered/Resolved]
  - Tongue oedema [Recovered/Resolved]
  - Plicated tongue [Recovered/Resolved]
  - Tongue dry [Recovered/Resolved]
